FAERS Safety Report 6204091-7 (Version None)
Quarter: 2009Q2

REPORT INFORMATION
  Report Type: 
  Country: None (occurrence: None)
  Receive Date: 20090527
  Receipt Date: 20090519
  Transmission Date: 20091009
  Serious: Yes (Hospitalization)
  Sender: FDA-Public Use
  Company Number: US-PFIZER INC-2006009884

PATIENT
  Sex: Female
  Weight: 58.97 kg

DRUGS (1)
  1. MARAVIROC [Suspect]
     Indication: HIV INFECTION
     Route: 048
     Dates: start: 20050517, end: 20050908

REACTIONS (2)
  - NASAL ABSCESS [None]
  - SUBCUTANEOUS ABSCESS [None]
